FAERS Safety Report 7449969-1 (Version None)
Quarter: 2011Q2

REPORT INFORMATION
  Report Type: 
  Country: None (occurrence: None)
  Receive Date: 20110421
  Receipt Date: 20110414
  Transmission Date: 20111010
  Serious: Yes (Other)
  Sender: FDA-Public Use
  Company Number: 2011PV000019

PATIENT
  Age: 64 Year
  Sex: Male

DRUGS (7)
  1. CYCLOPHOSPHAMIDE [Concomitant]
  2. PREDNISONE [Concomitant]
  3. VINCRISTINE [Concomitant]
  4. DEPOCYT [Suspect]
     Indication: PROPHYLAXIS
     Dosage: 50 MG;Q3W;INTH
     Route: 055
     Dates: start: 20110105, end: 20110330
  5. DEXAMETHASONE [Concomitant]
  6. RITUXIMAH [Concomitant]
  7. DOXORUBICIN HYDROCHLORIDE [Concomitant]

REACTIONS (8)
  - NECK PAIN [None]
  - VISUAL IMPAIRMENT [None]
  - URINARY INCONTINENCE [None]
  - HEADACHE [None]
  - DIZZINESS [None]
  - EAR CONGESTION [None]
  - GAIT DISTURBANCE [None]
  - FALL [None]
